FAERS Safety Report 9297083 (Version 2)
Quarter: 2013Q2

REPORT INFORMATION
  Report Type: Spontaneous
  Country: US (occurrence: US)
  Receive Date: 20130518
  Receipt Date: 20130628
  Transmission Date: 20140414
  Serious: Yes (Other)
  Sender: FDA-Public Use
  Company Number: US-BAXTER-2013BAX013204

PATIENT
  Sex: Male

DRUGS (1)
  1. ADVATE [Suspect]
     Indication: FACTOR VIII DEFICIENCY
     Route: 042

REACTIONS (5)
  - Device related infection [Recovered/Resolved]
  - Factor VIII inhibition [Recovered/Resolved]
  - Activities of daily living impaired [Unknown]
  - Haemarthrosis [Unknown]
  - Pain [Unknown]
